FAERS Safety Report 24181984 (Version 1)
Quarter: 2024Q3

REPORT INFORMATION
  Report Type: Spontaneous
  Country: US (occurrence: US)
  Receive Date: 20240807
  Receipt Date: 20240807
  Transmission Date: 20241016
  Serious: No
  Sender: CSL BEHRING
  Company Number: US-BEH-2024176781

PATIENT
  Sex: Female

DRUGS (1)
  1. ZEMAIRA [Suspect]
     Active Substance: .ALPHA.1-PROTEINASE INHIBITOR HUMAN
     Indication: Alpha-1 antitrypsin deficiency
     Dosage: 7800 IU, QW
     Route: 042
     Dates: start: 20231204

REACTIONS (5)
  - Urticaria [Unknown]
  - Pruritus [Unknown]
  - Nodule [Unknown]
  - Dermatitis [Unknown]
  - Drug hypersensitivity [Unknown]
